FAERS Safety Report 6575035-3 (Version None)
Quarter: 2010Q1

REPORT INFORMATION
  Report Type: 
  Country: None (occurrence: None)
  Receive Date: 20100209
  Receipt Date: 20100126
  Transmission Date: 20100710
  Serious: Yes (Disabling)
  Sender: FDA-Public Use
  Company Number: JP-BAYER-200915146BYL

PATIENT
  Age: 69 Year
  Sex: Male
  Weight: 66 kg

DRUGS (4)
  1. NEXAVAR [Suspect]
     Indication: HEPATIC NEOPLASM MALIGNANT
     Dosage: TOTAL DAILY DOSE: 400 MG  UNIT DOSE: 200 MG
     Route: 048
     Dates: start: 20091203, end: 20091209
  2. URSO 250 [Concomitant]
     Indication: HEPATITIS C
     Dosage: UNIT DOSE: 100 MG
     Route: 048
  3. NORVASC [Concomitant]
     Indication: HYPERTENSION
     Dosage: UNIT DOSE: 2.5 MG
     Route: 048
  4. VASOMET [Concomitant]
     Indication: HYPERTENSION
     Dosage: UNIT DOSE: 0.5 MG
     Route: 048

REACTIONS (2)
  - DERMATITIS [None]
  - RENAL FAILURE [None]
